FAERS Safety Report 9770349 (Version 2)
Quarter: 2014Q3

REPORT INFORMATION
  Report Type: Spontaneous
  Country: US (occurrence: US)
  Receive Date: 20131218
  Receipt Date: 20140822
  Transmission Date: 20150326
  Serious: Yes (Hospitalization, Other)
  Sender: FDA-Public Use
  Company Number: US-009507513-1312USA008388

PATIENT
  Sex: Female

DRUGS (1)
  1. NUVARING [Suspect]
     Active Substance: ETHINYL ESTRADIOL\ETONOGESTREL
     Indication: DYSFUNCTIONAL UTERINE BLEEDING
     Dosage: INSERT WITHIN 5 DAYS OF CYCLE, REMOVE IN 3 WEEKS, FOR 1 WEEK
     Route: 067
     Dates: start: 20090922, end: 20120921

REACTIONS (4)
  - Pulmonary embolism [Unknown]
  - Hypercoagulation [Unknown]
  - Deep vein thrombosis [Unknown]
  - Off label use [Unknown]

NARRATIVE: CASE EVENT DATE: 20120922
